FAERS Safety Report 5608150-9 (Version None)
Quarter: 2008Q1

REPORT INFORMATION
  Report Type: 
  Country: None (occurrence: None)
  Receive Date: 20080125
  Receipt Date: 20080109
  Transmission Date: 20080703
  Serious: Yes (Other)
  Sender: FDA-Public Use
  Company Number: 2008JP000068

PATIENT
  Age: 63 Year
  Sex: Female

DRUGS (2)
  1. FUNGUARD (MICAFUNGIN) [Suspect]
     Indication: BRONCHOPULMONARY ASPERGILLOSIS
     Dosage: 300 MG, IV DRIP
     Route: 041
     Dates: start: 20071231
  2. MEROPEN(MEROPENEM) [Suspect]

REACTIONS (2)
  - BRONCHOPULMONARY ASPERGILLOSIS [None]
  - INTERSTITIAL LUNG DISEASE [None]
